FAERS Safety Report 6037069-7 (Version None)
Quarter: 2009Q1

REPORT INFORMATION
  Report Type: 
  Country: None (occurrence: None)
  Receive Date: 20090114
  Receipt Date: 20090108
  Transmission Date: 20090719
  Serious: Yes (Other)
  Sender: FDA-Public Use
  Company Number: US-WYE-H07609109

PATIENT
  Age: 18 Year
  Sex: Male
  Weight: 81.72 kg

DRUGS (2)
  1. ROBITUSSIN COUGH LONG ACTING [Suspect]
     Indication: DRUG ABUSE
     Dosage: 2 BOTTLES MIXED WITH APPROXIMATELY 2 LITERS OF SPRITE, DAILY
     Route: 048
     Dates: start: 20070101
  2. CANNABIS [Concomitant]
     Dosage: UNKNOWN
     Route: 055

REACTIONS (2)
  - DRUG ABUSE [None]
  - INTENTIONAL OVERDOSE [None]
